FAERS Safety Report 5720754-1 (Version None)
Quarter: 2008Q2

REPORT INFORMATION
  Report Type: 
  Country: None (occurrence: None)
  Receive Date: 20080429
  Receipt Date: 20080421
  Transmission Date: 20081010
  Serious: Yes (Other)
  Sender: FDA-Public Use
  Company Number: US-BRISTOL-MYERS SQUIBB COMPANY-14159321

PATIENT
  Age: 59 Year
  Sex: Male
  Weight: 107 kg

DRUGS (3)
  1. ABILIFY [Suspect]
     Indication: BIPOLAR II DISORDER
     Dosage: DOSE DECREASED TO 2MG.
  2. HYZAAR [Concomitant]
  3. OMEGA-3 [Concomitant]

REACTIONS (3)
  - ARTHRALGIA [None]
  - FATIGUE [None]
  - LUPUS-LIKE SYNDROME [None]
